FAERS Safety Report 18420087 (Version 1)
Quarter: 2020Q4

REPORT INFORMATION
  Report Type: Spontaneous
  Country: GB (occurrence: GB)
  Receive Date: 20201023
  Receipt Date: 20201023
  Transmission Date: 20210114
  Serious: Yes (Other)
  Sender: FDA-Public Use
  Company Number: GB-PFIZER INC-2020408012

PATIENT
  Age: 19 Year
  Sex: Male
  Weight: 72 kg

DRUGS (11)
  1. PREDNISOLONE. [Concomitant]
     Active Substance: PREDNISOLONE
     Dosage: 6 DF, 1X/DAY, EVERY MORNING
     Dates: start: 20200928
  2. FLUTICASONE. [Concomitant]
     Active Substance: FLUTICASONE
     Dosage: 4 DF, 1X/DAY, 2 SPRAY INTO EACH NOSTRIL
     Route: 045
     Dates: start: 20140624
  3. FUCIBET [Concomitant]
     Dosage: 1 DF, AS NEEDED, (APPLY THINLY TWICE DAILY, NEVER TO...)
     Dates: start: 20121220
  4. CLENIL MODULITE [Concomitant]
     Active Substance: BECLOMETHASONE DIPROPIONATE
     Dosage: 4 DF, 1X/DAY
     Route: 055
     Dates: start: 20160128
  5. FEXOFENADINE [Concomitant]
     Active Substance: FEXOFENADINE HYDROCHLORIDE
     Dosage: 1 DF, 1X/DAY
     Dates: start: 20180911
  6. BETNOVATE [Concomitant]
     Active Substance: BETAMETHASONE
     Indication: SKIN DISORDER
     Dosage: 2 DF, 1X/DAY, USE SPARINGLY ONLY WHEN SKIN BAD
     Dates: start: 20140624
  7. EPIPEN [Concomitant]
     Active Substance: EPINEPHRINE
     Dosage: UNK, AS NEEDED
     Dates: start: 20190806
  8. IBUPROFEN. [Suspect]
     Active Substance: IBUPROFEN
     Dosage: 200 MG
     Dates: start: 20200928
  9. SALBUTAMOL [Concomitant]
     Active Substance: ALBUTEROL
     Dosage: 2 DF, AS NEEDED
     Route: 055
     Dates: start: 20200117
  10. DIPROBASE [PARAFFIN, LIQUID;WHITE SOFT PARAFFIN] [Concomitant]
     Dosage: UNK, APPLY
     Dates: start: 20180216
  11. DERMOL [BENZALKONIUM CHLORIDE;CHLORHEXIDINE HYDROCHLORIDE;ISOPROPYL MY [Concomitant]
     Dosage: UNK UNK, AS NEEDED
     Dates: start: 20180216

REACTIONS (1)
  - Face oedema [Recovering/Resolving]

NARRATIVE: CASE EVENT DATE: 20200928
